FAERS Safety Report 12917844 (Version 1)
Quarter: 2016Q4

REPORT INFORMATION
  Report Type: Spontaneous
  Country: GB (occurrence: GB)
  Receive Date: 20161107
  Receipt Date: 20161107
  Transmission Date: 20170207
  Serious: Yes (Death, Hospitalization, Other)
  Sender: FDA-Public Use
  Company Number: GB-BAYER-2016-204506

PATIENT
  Age: 69 Year
  Sex: Female

DRUGS (16)
  1. ADEMPAS [Suspect]
     Active Substance: RIOCIGUAT
     Indication: PULMONARY HYPERTENSION
     Dosage: 2.5 MG, TID
     Route: 048
     Dates: start: 20160520, end: 20160916
  2. SINTHROME [Concomitant]
     Active Substance: ACENOCOUMAROL
     Dosage: UNK
  3. PREGABALIN. [Concomitant]
     Active Substance: PREGABALIN
     Dosage: 150 MG, BID
  4. BUMETANIDE. [Concomitant]
     Active Substance: BUMETANIDE
     Dosage: 1 MG, QD
  5. SERTRALINE [Concomitant]
     Active Substance: SERTRALINE HYDROCHLORIDE
     Dosage: 50 MG, QD
  6. TOPIRAMATE. [Concomitant]
     Active Substance: TOPIRAMATE
     Dosage: 2 PUFFS
  7. DULOXETINE. [Concomitant]
     Active Substance: DULOXETINE
     Dosage: 60 MG, OM
  8. METOCLOPRAMIDE. [Concomitant]
     Active Substance: METOCLOPRAMIDE
     Dosage: 10 MG, TID
  9. COLECALCIFEROL [Concomitant]
     Active Substance: CHOLECALCIFEROL
     Dosage: 1 DF, QD
  10. DULOXETINE. [Concomitant]
     Active Substance: DULOXETINE
     Dosage: 30 MG, UNK
  11. OMEPRAZOLE. [Concomitant]
     Active Substance: OMEPRAZOLE
     Dosage: 20 MG, OM
  12. OXYCODONE [Concomitant]
     Active Substance: OXYCODONE
     Dosage: 5 MG, QD
  13. SPIRONOLACTONE. [Concomitant]
     Active Substance: SPIRONOLACTONE
     Dosage: 50 MG, OM
  14. BUDESONIDE W/FORMOTEROL FUMARATE [Concomitant]
     Active Substance: BUDESONIDE\FORMOTEROL FUMARATE
  15. METFORMIN [Concomitant]
     Active Substance: METFORMIN HYDROCHLORIDE
     Dosage: 1 G, TID
  16. LORAZEPAM. [Concomitant]
     Active Substance: LORAZEPAM
     Dosage: 1 MG, OM

REACTIONS (23)
  - Pulmonary hypertension [Fatal]
  - Pneumonia [Fatal]
  - Dizziness [None]
  - Ataxia [None]
  - Acute kidney injury [None]
  - Depression [Fatal]
  - Unresponsive to stimuli [Fatal]
  - General physical health deterioration [None]
  - Fall [None]
  - Confusional state [None]
  - Hyperkalaemia [None]
  - International normalised ratio increased [None]
  - Pneumonia [None]
  - Dyskinesia [None]
  - Cough [None]
  - Eating disorder [Fatal]
  - Blood albumin decreased [None]
  - Lung hypoinflation [None]
  - Inflammation [None]
  - Syncope [None]
  - Paraesthesia [None]
  - Hypoxia [None]
  - Communication disorder [Fatal]

NARRATIVE: CASE EVENT DATE: 20160809
